FAERS Safety Report 8584121 (Version 3)
Quarter: 2012Q4

REPORT INFORMATION
  Report Type: 
  Country: JP (occurrence: JP)
  Receive Date: 20120529
  Receipt Date: 20120919
  Transmission Date: 20130627
  Serious: Yes (Other)
  Sender: FDA-Public Use
  Company Number: JP-009507513-1205USA00478

PATIENT
  Age: 76 Year
  Sex: Male
  Weight: 74 kg

DRUGS (9)
  1. MENESIT [Suspect]
     Indication: PARKINSONISM
     Dosage: 100 mg, qd
     Route: 048
     Dates: start: 20120416, end: 20120418
  2. VOGLIBOSE [Interacting]
     Indication: DIABETES MELLITUS
     Dosage: 0.2 mg, bid
     Route: 048
     Dates: start: 20090401
  3. GLYBURIDE [Interacting]
     Indication: DIABETES MELLITUS
     Dosage: 2.5 mg, qd
     Route: 048
     Dates: start: 20001112, end: 20120420
  4. KINEDAK [Concomitant]
     Dosage: 50 mg, bid
     Route: 048
     Dates: start: 20090917
  5. HARNAL [Concomitant]
     Dosage: 1 DF, qd
     Route: 048
     Dates: start: 20090401
  6. DORNER [Concomitant]
     Dosage: 40  ?g, qd
     Route: 048
  7. LASIX (FUROSEMIDE) [Concomitant]
     Dosage: 40 mg, qd
     Route: 048
  8. ALDACTONE A [Concomitant]
     Dosage: 50 mg, qd
     Route: 048
  9. AMLODIN (AMLODIPINE BESYLATE) [Concomitant]
     Dosage: 2.5 mg, qd
     Route: 048
     Dates: start: 20060802

REACTIONS (3)
  - Hypoglycaemia [Recovered/Resolved]
  - Drug interaction [Recovered/Resolved]
  - Altered state of consciousness [Unknown]
